FAERS Safety Report 4303694-4 (Version None)
Quarter: 2004Q1

REPORT INFORMATION
  Report Type: 
  Country: None (occurrence: None)
  Receive Date: 20040223
  Receipt Date: 20040209
  Transmission Date: 20041129
  Serious: Yes (Other)
  Sender: FDA-Public Use
  Company Number: 20040200125

PATIENT
  Age: 85 Year
  Sex: Female

DRUGS (2)
  1. BREVIBLOC [Suspect]
     Indication: PROPHYLAXIS
     Dates: start: 20031224, end: 20031224
  2. VERAPAMIL HCL [Suspect]

REACTIONS (3)
  - ATRIOVENTRICULAR BLOCK [None]
  - CARDIAC ARREST [None]
  - SUPRAVENTRICULAR EXTRASYSTOLES [None]
